FAERS Safety Report 7386716-6 (Version None)
Quarter: 2011Q1

REPORT INFORMATION
  Report Type: 
  Country: None (occurrence: None)
  Receive Date: 20110331
  Receipt Date: 20110329
  Transmission Date: 20110831
  Serious: Yes (Other)
  Sender: FDA-Public Use
  Company Number: US-AMGEN-USASP2011016755

PATIENT
  Sex: Female

DRUGS (4)
  1. CORTICOSTEROIDS [Concomitant]
  2. RITUXIMAB [Concomitant]
  3. NPLATE [Suspect]
     Indication: IDIOPATHIC THROMBOCYTOPENIC PURPURA
     Dosage: 2 A?G/KG, UNK
     Dates: start: 20101122, end: 20110110
  4. IMMUNOGLOBULINS [Concomitant]

REACTIONS (1)
  - PLATELET COUNT DECREASED [None]
